FAERS Safety Report 13560617 (Version 2)
Quarter: 2017Q2

REPORT INFORMATION
  Report Type: Spontaneous
  Country: US (occurrence: US)
  Receive Date: 20170516
  Receipt Date: 20170516
  Transmission Date: 20170830
  Serious: No
  Sender: FDA-Public Use
  Company Number: US-PFIZER INC-2017210740

PATIENT
  Sex: Female

DRUGS (1)
  1. LYRICA [Suspect]
     Active Substance: PREGABALIN
     Indication: NEURALGIA
     Dosage: 75MG CAPSULE TWO DOSES
     Dates: start: 20170509, end: 20170509

REACTIONS (4)
  - Drug ineffective [Unknown]
  - Headache [Unknown]
  - Somnolence [Unknown]
  - Feeling abnormal [Unknown]
